FAERS Safety Report 16697374 (Version 1)
Quarter: 2019Q4

REPORT INFORMATION
  Report Type: Spontaneous
  Country: US (occurrence: US)
  Receive Date: 20190812
  Receipt Date: 20190812
  Transmission Date: 20200122
  Serious: Yes (Hospitalization)
  Sender: FDA-Public Use
  Company Number: None

PATIENT
  Age: 27 Year
  Sex: Male
  Weight: 83.25 kg

DRUGS (1)
  1. TOPICAL SOLUTION. MINOXIDIL 6%, FINASTERIDE 0.1% [Suspect]
     Active Substance: FINASTERIDE\MINOXIDIL
     Indication: ALOPECIA
     Dosage: ?          QUANTITY:1 SPRAY(S);?
     Route: 061
     Dates: start: 20190725, end: 20190803

REACTIONS (6)
  - Feeling abnormal [None]
  - Hormone level abnormal [None]
  - Sexual dysfunction [None]
  - Disturbance in attention [None]
  - Headache [None]
  - Blood test abnormal [None]

NARRATIVE: CASE EVENT DATE: 20190804
